FAERS Safety Report 26216994 (Version 1)
Quarter: 2025Q4

REPORT INFORMATION
  Report Type: Spontaneous
  Country: US (occurrence: US)
  Receive Date: 20251231
  Receipt Date: 20251231
  Transmission Date: 20260118
  Serious: No
  Sender: TOLMAR
  Company Number: US-Tolmar-TLM-2025-09683

PATIENT

DRUGS (3)
  1. ELIGARD [Suspect]
     Active Substance: LEUPROLIDE ACETATE
     Indication: Prostate cancer
     Dosage: LOT 15489CUS EXP 03/2027?SN 9590819777734?GTIN 00362935227106?SYRINGE A: 15489AUS EXP 04/2027?SYRING
     Dates: start: 20251218
  2. ELIGARD [Suspect]
     Active Substance: LEUPROLIDE ACETATE
  3. DEVICE [Suspect]
     Active Substance: DEVICE
     Indication: Prostate cancer

REACTIONS (3)
  - Product preparation error [Unknown]
  - Intercepted product preparation error [Unknown]
  - Device occlusion [Unknown]
